FAERS Safety Report 7069988-7 (Version None)
Quarter: 2010Q4

REPORT INFORMATION
  Report Type: 
  Country: None (occurrence: None)
  Receive Date: 20101028
  Receipt Date: 20100916
  Transmission Date: 20110411
  Serious: No
  Sender: FDA-Public Use
  Company Number: US-WYE-H16749910

PATIENT
  Age: 68 Year
  Sex: Female
  Weight: 70.37 kg

DRUGS (2)
  1. ADVIL [Suspect]
     Indication: HEADACHE
     Dosage: FOUR TABLETS AT ONCE, ADVISED BY HER PHYSICIAN
     Route: 048
     Dates: start: 20100730, end: 20100730
  2. PRILOSEC [Concomitant]

REACTIONS (3)
  - CONDITION AGGRAVATED [None]
  - DRUG INEFFECTIVE [None]
  - HEADACHE [None]
